FAERS Safety Report 18525825 (Version 1)
Quarter: 2020Q4

REPORT INFORMATION
  Report Type: Spontaneous
  Country: US (occurrence: US)
  Receive Date: 20201120
  Receipt Date: 20201120
  Transmission Date: 20210114
  Serious: Yes (Hospitalization, Other)
  Sender: FDA-Public Use
  Company Number: US-DRREDDYS-USA/USA/20/0129179

PATIENT
  Age: 51 Year
  Sex: Female

DRUGS (5)
  1. ALTERIL (MELATONIN, TRYPTOPHAN, L-) [Suspect]
     Active Substance: DIETARY SUPPLEMENT
     Indication: PRODUCT USED FOR UNKNOWN INDICATION
     Dosage: PILL
     Route: 048
  2. HYDROCODONE [Suspect]
     Active Substance: HYDROCODONE
     Indication: PRODUCT USED FOR UNKNOWN INDICATION
     Route: 048
  3. PREDNISONE. [Suspect]
     Active Substance: PREDNISONE
     Indication: PRODUCT USED FOR UNKNOWN INDICATION
     Route: 048
  4. TIZANIDINE HYDROCHLORIDE. [Suspect]
     Active Substance: TIZANIDINE HYDROCHLORIDE
     Indication: PRODUCT USED FOR UNKNOWN INDICATION
     Route: 048
  5. ENALAPRIL [Suspect]
     Active Substance: ENALAPRIL
     Indication: PRODUCT USED FOR UNKNOWN INDICATION
     Route: 048

REACTIONS (12)
  - Cardiac failure acute [Recovering/Resolving]
  - Generalised tonic-clonic seizure [Recovering/Resolving]
  - Hypotension [Recovering/Resolving]
  - Congestive hepatopathy [Recovering/Resolving]
  - Intentional overdose [Recovering/Resolving]
  - Renal tubular necrosis [Recovering/Resolving]
  - Cardiogenic shock [Recovering/Resolving]
  - Toxicity to various agents [Recovering/Resolving]
  - Rhabdomyolysis [Recovering/Resolving]
  - Ventricular tachycardia [Recovering/Resolving]
  - Stress cardiomyopathy [Recovering/Resolving]
  - Acute hepatic failure [Recovering/Resolving]
